FAERS Safety Report 14384101 (Version 10)
Quarter: 2023Q2

REPORT INFORMATION
  Report Type: Spontaneous
  Country: US (occurrence: US)
  Receive Date: 20180115
  Receipt Date: 20230524
  Transmission Date: 20230721
  Serious: Yes (Other)
  Sender: FDA-Public Use
  Company Number: US-PFIZER INC-2018014643

PATIENT
  Age: 43 Year
  Sex: Female

DRUGS (3)
  1. XELJANZ XR [Suspect]
     Active Substance: TOFACITINIB CITRATE
     Indication: Chronic kidney disease
     Dosage: 11 MG, 1X/DAY
     Route: 048
     Dates: start: 201705
  2. XELJANZ XR [Suspect]
     Active Substance: TOFACITINIB CITRATE
     Indication: Rheumatoid arthritis
     Dosage: 11 MG, DAILY
     Route: 048
     Dates: start: 2018
  3. CINNAMON [Concomitant]
     Active Substance: CINNAMON
     Dosage: UNK

REACTIONS (12)
  - Sjogren^s syndrome [Unknown]
  - Product dose omission issue [Unknown]
  - Erythema [Unknown]
  - Diarrhoea [Recovered/Resolved]
  - Skin fissures [Recovered/Resolved]
  - Pain in extremity [Unknown]
  - Arthralgia [Unknown]
  - Back pain [Unknown]
  - Blood pressure increased [Unknown]
  - Inflammation [Unknown]
  - Sensitivity to weather change [Unknown]
  - Fatigue [Not Recovered/Not Resolved]
